FAERS Safety Report 21593049 (Version 1)
Quarter: 2022Q4

REPORT INFORMATION
  Report Type: Report from Study
  Country: AR (occurrence: AR)
  Receive Date: 20221114
  Receipt Date: 20221114
  Transmission Date: 20230113
  Serious: Yes (Hospitalization)
  Sender: FDA-Public Use
  Company Number: AR-ABBVIE-4199158

PATIENT
  Sex: Female

DRUGS (2)
  1. HUMIRA [Suspect]
     Active Substance: ADALIMUMAB
     Indication: Colitis ulcerative
     Dosage: DOSE INCREASED
     Route: 058
  2. HUMIRA [Suspect]
     Active Substance: ADALIMUMAB
     Dosage: FORM STRENGTH 40 MG END DATE 2022.
     Route: 058
     Dates: start: 20220829

REACTIONS (4)
  - Polymerase chain reaction positive [Recovered/Resolved]
  - Gastrointestinal inflammation [Recovered/Resolved]
  - Intestinal ulcer [Recovered/Resolved]
  - Haematochezia [Recovered/Resolved]
